FAERS Safety Report 5703191-5 (Version None)
Quarter: 2008Q2

REPORT INFORMATION
  Report Type: 
  Country: None (occurrence: None)
  Receive Date: 20080411
  Receipt Date: 20080314
  Transmission Date: 20081010
  Serious: No
  Sender: FDA-Public Use
  Company Number: US-BAYER-200817248NA

PATIENT
  Age: 43 Year
  Sex: Female
  Weight: 57 kg

DRUGS (3)
  1. YAZ [Suspect]
     Indication: ENDOMETRIOSIS
     Route: 048
     Dates: start: 20080201
  2. ASCORBIC ACID [Concomitant]
     Indication: UNEVALUABLE EVENT
  3. MULTI-VITAMIN [Concomitant]
     Indication: UNEVALUABLE EVENT

REACTIONS (1)
  - WITHDRAWAL BLEEDING IRREGULAR [None]
